FAERS Safety Report 18561067 (Version 6)
Quarter: 2022Q2

REPORT INFORMATION
  Report Type: Report from Study
  Country: US (occurrence: US)
  Receive Date: 20201130
  Receipt Date: 20220625
  Transmission Date: 20220721
  Serious: Yes (Other)
  Sender: FDA-Public Use
  Company Number: US-TAKEDA-US202014900

PATIENT
  Sex: Female
  Weight: 64 kg

DRUGS (42)
  1. HUMAN IMMUNOGLOBULIN G [Suspect]
     Active Substance: HUMAN IMMUNOGLOBULIN G
     Indication: Immunodeficiency common variable
     Dosage: 10 GRAM, 1/WEEK
     Route: 058
     Dates: start: 20120705
  2. HUMAN IMMUNOGLOBULIN G [Suspect]
     Active Substance: HUMAN IMMUNOGLOBULIN G
     Dosage: 10 GRAM, 1/WEEK
     Route: 058
     Dates: start: 20120709
  3. HUMAN IMMUNOGLOBULIN G [Suspect]
     Active Substance: HUMAN IMMUNOGLOBULIN G
     Dosage: 10 GRAM, 1/WEEK
     Route: 058
     Dates: start: 20120806
  4. DIPHENHYDRAMINE [Concomitant]
     Active Substance: DIPHENHYDRAMINE
     Route: 065
  5. ALBUTEROL SULFATE [Concomitant]
     Active Substance: ALBUTEROL SULFATE
     Route: 065
  6. FUROSEMIDE [Concomitant]
     Active Substance: FUROSEMIDE
     Route: 065
  7. EPINEPHRINE [Concomitant]
     Active Substance: EPINEPHRINE
     Route: 065
  8. OXYCODONE [Concomitant]
     Active Substance: OXYCODONE
     Route: 065
  9. METOCLOPRAMIDE [Concomitant]
     Active Substance: METOCLOPRAMIDE
     Route: 065
  10. KLOR-CON [Concomitant]
     Active Substance: POTASSIUM CHLORIDE
     Route: 065
  11. .ALPHA.-TOCOPHEROL [Concomitant]
     Active Substance: .ALPHA.-TOCOPHEROL
     Route: 065
  12. CYANOCOBALAMIN [Concomitant]
     Active Substance: CYANOCOBALAMIN
     Route: 065
  13. ATENOLOL [Concomitant]
     Active Substance: ATENOLOL
     Route: 065
  14. ZOFRAN [Concomitant]
     Active Substance: ONDANSETRON HYDROCHLORIDE
     Route: 065
  15. MELOXICAM [Concomitant]
     Active Substance: MELOXICAM
     Route: 065
  16. LEVALBUTEROL [Concomitant]
     Active Substance: LEVALBUTEROL
     Route: 065
  17. FLUCONAZOLE [Concomitant]
     Active Substance: FLUCONAZOLE
     Route: 065
  18. SYNTHROID [Concomitant]
     Active Substance: LEVOTHYROXINE SODIUM
     Route: 065
  19. ASPIRIN [Concomitant]
     Active Substance: ASPIRIN
     Route: 065
  20. ACYCLOVIR [Concomitant]
     Active Substance: ACYCLOVIR
     Route: 065
  21. ZOLPIDEM [Concomitant]
     Active Substance: ZOLPIDEM TARTRATE
     Route: 065
  22. VITAMIN D3 [Concomitant]
     Active Substance: CHOLECALCIFEROL
     Route: 065
  23. LASIX [Concomitant]
     Active Substance: FUROSEMIDE
     Route: 065
  24. RESTASIS [Concomitant]
     Active Substance: CYCLOSPORINE
     Route: 065
  25. VITAMIN C [Concomitant]
     Active Substance: ASCORBIC ACID
     Route: 065
  26. NIACIN [Concomitant]
     Active Substance: NIACIN
     Route: 065
  27. POTASSIUM [Concomitant]
     Active Substance: POTASSIUM
     Route: 065
  28. OMEPRAZOLE [Concomitant]
     Active Substance: OMEPRAZOLE
     Route: 065
  29. MUCINEX [Concomitant]
     Active Substance: GUAIFENESIN
     Route: 065
  30. MONTELUKAST [Concomitant]
     Active Substance: MONTELUKAST SODIUM
     Route: 065
  31. FISH OIL [Concomitant]
     Active Substance: FISH OIL
     Route: 065
  32. CYMBALTA [Concomitant]
     Active Substance: DULOXETINE HYDROCHLORIDE
     Route: 065
  33. VALIUM [Concomitant]
     Active Substance: DIAZEPAM
     Route: 065
  34. BACLOFEN [Concomitant]
     Active Substance: BACLOFEN
     Route: 065
  35. ADVAIR HFA [Concomitant]
     Active Substance: FLUTICASONE PROPIONATE\SALMETEROL XINAFOATE
     Route: 065
  36. CHOLECALCIFEROL\RETINOL [Concomitant]
     Active Substance: CHOLECALCIFEROL\RETINOL
     Route: 065
  37. SYSTANE (HYPROMELLOSE 2910 (4000 MPA.S)) [Concomitant]
     Active Substance: HYPROMELLOSE 2910 (4000 MPA.S)
     Route: 065
  38. ACETAMINOPHEN\OXYCODONE HYDROCHLORIDE\OXYCODONE TEREPHTHALATE [Concomitant]
     Active Substance: ACETAMINOPHEN\OXYCODONE HYDROCHLORIDE\OXYCODONE TEREPHTHALATE
     Route: 065
  39. XOPENEX [Concomitant]
     Active Substance: LEVALBUTEROL HYDROCHLORIDE
     Route: 065
  40. CLINDAMYCIN HYDROCHLORIDE [Concomitant]
     Active Substance: CLINDAMYCIN HYDROCHLORIDE
     Route: 065
  41. ACETAMINOPHEN [Concomitant]
     Active Substance: ACETAMINOPHEN
     Route: 065
  42. QUETIAPINE [Concomitant]
     Active Substance: QUETIAPINE
     Route: 065

REACTIONS (10)
  - Pneumonia [Unknown]
  - Pharyngitis streptococcal [Unknown]
  - Tonsillitis [Unknown]
  - Urine output decreased [Unknown]
  - Drug hypersensitivity [Unknown]
  - Wound infection [Unknown]
  - Post procedural infection [Unknown]
  - Incorrect product administration duration [Unknown]
  - Folliculitis [Unknown]
  - Device issue [Unknown]
